FAERS Safety Report 25811841 (Version 1)
Quarter: 2025Q3

REPORT INFORMATION
  Report Type: Other
  Country: MD (occurrence: MD)
  Receive Date: 20250917
  Receipt Date: 20250917
  Transmission Date: 20251020
  Serious: Yes (Other)
  Sender: MACLEODS
  Company Number: MD-MACLEODS PHARMA-MAC2025055210

PATIENT

DRUGS (4)
  1. PYRAZINAMIDE [Suspect]
     Active Substance: PYRAZINAMIDE
     Indication: Pulmonary tuberculosis
     Dosage: 4 TABLETS OF 400 MG PER DAY, DAILY
     Route: 048
     Dates: start: 20250127, end: 20250218
  2. ISONIAZID [Suspect]
     Active Substance: ISONIAZID
     Indication: Pulmonary tuberculosis
     Dosage: MICRO LABS LIMITED, INDIA
     Route: 048
     Dates: start: 20250127, end: 20250218
  3. RIFAPENTINE [Suspect]
     Active Substance: RIFAPENTINE
     Indication: Pulmonary tuberculosis
     Dosage: 4 TABLETS OF 300 MG PER DAY, DAILY (LUPIN LTD, INDIA)
     Route: 048
     Dates: start: 20250127, end: 20250218
  4. MOXIFLOXACIN HYDROCHLORIDE [Suspect]
     Active Substance: MOXIFLOXACIN HYDROCHLORIDE
     Indication: Pulmonary tuberculosis
     Dosage: 1 TABLET OF 400 MG PER DAY, DAILY (MSN LABORATORIES PRIVATE LIMITED, INDIA)
     Route: 048
     Dates: start: 20250127, end: 20250218

REACTIONS (1)
  - Hyperbilirubinaemia [Recovering/Resolving]

NARRATIVE: CASE EVENT DATE: 20250218
